FAERS Safety Report 5959200-1 (Version None)
Quarter: 2008Q4

REPORT INFORMATION
  Report Type: 
  Country: None (occurrence: None)
  Receive Date: 20081120
  Receipt Date: 20080616
  Transmission Date: 20090506
  Serious: No
  Sender: FDA-Public Use
  Company Number: A0733135A

PATIENT
  Age: 60 Year
  Sex: Female

DRUGS (3)
  1. BUPROPION HYDROCHLORIDE [Suspect]
     Indication: DEPRESSION
     Dosage: 100MG PER DAY
     Route: 048
  2. BUPROPION HCL [Suspect]
     Route: 048
     Dates: start: 20060101
  3. CYMBALTA [Concomitant]

REACTIONS (1)
  - DRUG INEFFECTIVE [None]
